FAERS Safety Report 6029059-5 (Version None)
Quarter: 2009Q1

REPORT INFORMATION
  Report Type: 
  Country: None (occurrence: None)
  Receive Date: 20090106
  Receipt Date: 20081229
  Transmission Date: 20090719
  Serious: Yes (Hospitalization)
  Sender: FDA-Public Use
  Company Number: US-ELI_LILLY_AND_COMPANY-US200812005911

PATIENT
  Sex: Female

DRUGS (1)
  1. CYMBALTA [Suspect]
     Indication: EMOTIONAL DISORDER
     Dosage: 60 MG, DAILY (1/D)
     Dates: start: 20050101, end: 20081201

REACTIONS (2)
  - GASTRIC BYPASS [None]
  - WEIGHT INCREASED [None]
